FAERS Safety Report 4685386-5 (Version None)
Quarter: 2005Q2

REPORT INFORMATION
  Report Type: 
  Country: None (occurrence: None)
  Receive Date: 20050608
  Receipt Date: 20041203
  Transmission Date: 20051028
  Serious: Yes (Life-Threatening)
  Sender: FDA-Public Use
  Company Number: GB-GLAXOSMITHKLINE-B0359657A

PATIENT
  Sex: Female

DRUGS (4)
  1. PAROXETINE HCL [Suspect]
     Route: 065
     Dates: start: 19960201
  2. PARACETAMOL [Suspect]
     Route: 065
  3. ALCOHOL [Suspect]
     Route: 065
  4. CO-PROXAMOL [Concomitant]
     Dosage: 4TAB UNKNOWN
     Route: 065

REACTIONS (3)
  - ILL-DEFINED DISORDER [None]
  - OVERDOSE [None]
  - SUICIDE ATTEMPT [None]
